FAERS Safety Report 12134835 (Version 1)
Quarter: 2016Q1

REPORT INFORMATION
  Report Type: Spontaneous
  Country: US (occurrence: US)
  Receive Date: 20160301
  Receipt Date: 20160301
  Transmission Date: 20160526
  Serious: Yes (Other)
  Sender: FDA-Public Use
  Company Number: US-BAYER-2016-040308

PATIENT
  Age: 82 Year
  Sex: Female
  Weight: 58.96 kg

DRUGS (1)
  1. ALKA-SELTZER PLUS SEVERE SINUS CONGESTION AND COUGH [Suspect]
     Active Substance: ACETAMINOPHEN\DEXTROMETHORPHAN HYDROBROMIDE\PHENYLEPHRINE HYDROCHLORIDE
     Indication: NASOPHARYNGITIS
     Dosage: UNK
     Route: 048
     Dates: start: 201602, end: 201602

REACTIONS (2)
  - Product difficult to swallow [None]
  - Choking [Recovered/Resolved]

NARRATIVE: CASE EVENT DATE: 201602
